FAERS Safety Report 4872058-7 (Version None)
Quarter: 2005Q4

REPORT INFORMATION
  Report Type: 
  Country: None (occurrence: None)
  Receive Date: 20051230
  Receipt Date: 20051223
  Transmission Date: 20060501
  Serious: Yes (Death, Life-Threatening, Hospitalization)
  Sender: FDA-Public Use
  Company Number: 2005-12-1097

PATIENT
  Age: 29 Year
  Sex: Female
  Weight: 70 kg

DRUGS (5)
  1. PEG-INTRON [Suspect]
     Indication: HEPATITIS C
     Dosage: 70 MCG QW SUBCUTANEOUS
     Route: 058
     Dates: start: 20051206, end: 20051206
  2. ANTICONVULSANTS (NOS) [Concomitant]
  3. PHENYTOIN SODIUM CAP [Concomitant]
  4. ZOVIRAX [Concomitant]
  5. ZOSYN [Concomitant]

REACTIONS (8)
  - BLOOD POTASSIUM INCREASED [None]
  - BRAIN OEDEMA [None]
  - COMA [None]
  - CONVULSION [None]
  - ENCEPHALOPATHY [None]
  - LABORATORY TEST ABNORMAL [None]
  - PYREXIA [None]
  - SOMNOLENCE [None]
